FAERS Safety Report 9462863 (Version 1)
Quarter: 2013Q3

REPORT INFORMATION
  Report Type: Spontaneous
  Country: AU (occurrence: AU)
  Receive Date: 20130816
  Receipt Date: 20130816
  Transmission Date: 20140515
  Serious: Yes (Other)
  Sender: FDA-Public Use
  Company Number: AU-ROCHE-1260047

PATIENT
  Sex: Female

DRUGS (7)
  1. HERCEPTIN [Suspect]
     Indication: BREAST CANCER METASTATIC
     Dosage: 6 CYCLES
     Route: 065
  2. CAPECITABINE [Suspect]
     Indication: BREAST CANCER METASTATIC
     Dosage: CEASED
     Route: 065
  3. ABRAXANE [Concomitant]
     Dosage: 6 CYCLES
     Route: 065
  4. TAMOXIFEN [Concomitant]
  5. LAPATINIB [Concomitant]
  6. VINORELBINE [Concomitant]
  7. DOXYCYCLINE [Concomitant]

REACTIONS (10)
  - Rash [Recovered/Resolved]
  - Palmar-plantar erythrodysaesthesia syndrome [Recovering/Resolving]
  - Cellulitis [Unknown]
  - Osteonecrosis [Unknown]
  - Disease progression [Unknown]
  - Rash [Unknown]
  - Chest wall tumour [Unknown]
  - Pain [Unknown]
  - Musculoskeletal discomfort [Unknown]
  - Ulcer [Unknown]
